FAERS Safety Report 9373740 (Version 1)
Quarter: 2013Q2

REPORT INFORMATION
  Report Type: Spontaneous
  Country: US (occurrence: US)
  Receive Date: 20130628
  Receipt Date: 20130628
  Transmission Date: 20140414
  Serious: No
  Sender: FDA-Public Use
  Company Number: US-009507513-0409USA02398

PATIENT
  Sex: Female

DRUGS (1)
  1. LISINOPRIL [Suspect]
     Route: 048

REACTIONS (5)
  - Vision blurred [Unknown]
  - Joint swelling [Unknown]
  - Feeling hot [Unknown]
  - Palpitations [Unknown]
  - Presyncope [Unknown]
